FAERS Safety Report 6633234-6 (Version None)
Quarter: 2010Q1

REPORT INFORMATION
  Report Type: 
  Country: None (occurrence: None)
  Receive Date: 20100312
  Receipt Date: 20100304
  Transmission Date: 20100710
  Serious: Yes (Hospitalization, Other)
  Sender: FDA-Public Use
  Company Number: US-AMGEN-QUU384393

PATIENT
  Sex: Male
  Weight: 77.2 kg

DRUGS (14)
  1. ENBREL [Suspect]
     Indication: DRUG USE FOR UNKNOWN INDICATION
     Route: 058
     Dates: start: 20081205, end: 20091223
  2. METHOTREXATE [Suspect]
     Dates: start: 20090511, end: 20091223
  3. MEDROL [Concomitant]
     Route: 048
     Dates: start: 20091219
  4. ACTONEL [Concomitant]
     Dates: start: 20081009
  5. PLAQUENIL [Concomitant]
     Dates: start: 20080919
  6. FOLIC ACID [Concomitant]
     Dates: start: 20081002
  7. NEXIUM [Concomitant]
     Dates: start: 20010813
  8. FISH OIL [Concomitant]
  9. VITAMIN D [Concomitant]
  10. ADVAIR DISKUS 100/50 [Concomitant]
  11. ALTACE [Concomitant]
  12. UNSPECIFIED MEDICATION [Concomitant]
  13. AVODART [Concomitant]
  14. ARTHROTEC [Concomitant]

REACTIONS (9)
  - CLAVICLE FRACTURE [None]
  - DIVERTICULITIS [None]
  - ENCEPHALITIS VIRAL [None]
  - FALL [None]
  - FLUSHING [None]
  - HEAD INJURY [None]
  - LUNG INFILTRATION [None]
  - PNEUMONIA [None]
  - SKIN LACERATION [None]
